FAERS Safety Report 23282187 (Version 2)
Quarter: 2023Q4

REPORT INFORMATION
  Report Type: Spontaneous
  Country: CN (occurrence: CN)
  Receive Date: 20231211
  Receipt Date: 20231215
  Transmission Date: 20240109
  Serious: Yes (Other)
  Sender: FDA-Public Use
  Company Number: CN-BAYER-2023A176487

PATIENT
  Age: 53 Year
  Sex: Male
  Weight: 55 kg

DRUGS (3)
  1. ULTRAVIST [Suspect]
     Active Substance: IOPROMIDE
     Indication: Angiogram cerebral
     Dosage: 100 ML, ONCE
     Route: 042
     Dates: start: 20231127, end: 20231127
  2. ULTRAVIST [Suspect]
     Active Substance: IOPROMIDE
     Indication: Arteriogram
  3. ULTRAVIST [Suspect]
     Active Substance: IOPROMIDE
     Indication: Cerebrovascular insufficiency

REACTIONS (2)
  - Contrast encephalopathy [Recovering/Resolving]
  - Mental disorder [Recovered/Resolved]

NARRATIVE: CASE EVENT DATE: 20231127
